FAERS Safety Report 8482046-X (Version None)
Quarter: 2012Q3

REPORT INFORMATION
  Report Type: 
  Country: None (occurrence: None)
  Receive Date: 20120702
  Receipt Date: 20120628
  Transmission Date: 20120928
  Serious: Yes (Hospitalization, Other)
  Sender: FDA-Public Use
  Company Number: PHHY2012AU028853

PATIENT
  Sex: Male
  Weight: 70 kg

DRUGS (5)
  1. EXJADE [Suspect]
     Indication: IRON OVERLOAD
     Dosage: 500 MG, TID
  2. EXJADE [Suspect]
     Dosage: 1000 MG, DAILY
     Route: 048
     Dates: start: 20120403
  3. EXJADE [Suspect]
     Dosage: 1500 MG, DAILY
     Route: 048
     Dates: start: 20070101, end: 20120403
  4. NEXIUM [Concomitant]
     Dosage: 20 MG, BID
     Route: 048
  5. TRANEXAMIC ACID [Concomitant]
     Dosage: 2 DF, BID
     Route: 048

REACTIONS (2)
  - RENAL PAIN [None]
  - NEPHROLITHIASIS [None]
